FAERS Safety Report 8461109-9 (Version None)
Quarter: 2012Q2

REPORT INFORMATION
  Report Type: 
  Country: None (occurrence: None)
  Receive Date: 20120625
  Receipt Date: 20120614
  Transmission Date: 20120825
  Serious: Yes (Death)
  Sender: FDA-Public Use
  Company Number: US-BRISTOL-MYERS SQUIBB COMPANY-16687253

PATIENT

DRUGS (1)
  1. YERVOY [Suspect]
     Dosage: 5MG/ML;NDC 00003-2327-11;00003-2328-22;LT 918360;918121;EXP 7/2014

REACTIONS (1)
  - DEATH [None]
